FAERS Safety Report 9135646 (Version 2)
Quarter: 2013Q2

REPORT INFORMATION
  Report Type: Spontaneous
  Country: CA (occurrence: CA)
  Receive Date: 20130304
  Receipt Date: 20130620
  Transmission Date: 20140414
  Serious: Yes (Death)
  Sender: FDA-Public Use
  Company Number: CA-B.I. PHARMACEUTICALS,INC./RIDGEFIELD-2013-BI-05734BP

PATIENT
  Age: 66 Year
  Sex: Male

DRUGS (2)
  1. MIRAPEX [Suspect]
     Indication: RESTLESS LEGS SYNDROME
     Dates: start: 2001, end: 20090710
  2. MIRAPEX [Suspect]
     Indication: PARKINSONISM

REACTIONS (7)
  - Death [Fatal]
  - Pathological gambling [Unknown]
  - Hyperphagia [Unknown]
  - Compulsive shopping [Unknown]
  - Hypersexuality [Unknown]
  - Dermatillomania [Unknown]
  - Condition aggravated [Unknown]
